FAERS Safety Report 9192909 (Version 4)
Quarter: 2013Q3

REPORT INFORMATION
  Report Type: Report from Study
  Country: US (occurrence: US)
  Receive Date: 20130327
  Receipt Date: 20130717
  Transmission Date: 20140515
  Serious: No
  Sender: FDA-Public Use
  Company Number: US-VERTEX PHARMACEUTICALS INC.-2013-004043

PATIENT
  Age: 58 Year
  Sex: Male
  Weight: 72 kg

DRUGS (7)
  1. VX-950 (TELAPREVIR) [Suspect]
     Indication: HEPATITIS C
     Dosage: UNK
     Route: 048
     Dates: start: 20130302, end: 20130527
  2. RIBAVIRIN [Suspect]
     Indication: HEPATITIS C
     Dosage: 1200 MG, QD
     Dates: start: 20130302
  3. PEGINTRON [Suspect]
     Indication: HEPATITIS C
     Dosage: 90 ?G, QW
     Dates: start: 20130302
  4. BUPROPION HCL [Concomitant]
     Dosage: 300 MG, UNK
  5. GEMFIBROZIL [Concomitant]
     Dosage: 600 MG, UNK
  6. ONDANSETRON HCL [Concomitant]
     Dosage: 4 MG, UNK
  7. ASPIRIN [Concomitant]
     Dosage: 325 MG, UNK

REACTIONS (14)
  - Myalgia [Not Recovered/Not Resolved]
  - Dyspepsia [Not Recovered/Not Resolved]
  - Pyrexia [Not Recovered/Not Resolved]
  - Injection site swelling [Not Recovered/Not Resolved]
  - Nasopharyngitis [Unknown]
  - Decreased appetite [Not Recovered/Not Resolved]
  - Fatigue [Not Recovered/Not Resolved]
  - Asthenia [Not Recovered/Not Resolved]
  - Pruritus [Not Recovered/Not Resolved]
  - Dyspnoea exertional [Not Recovered/Not Resolved]
  - Headache [Not Recovered/Not Resolved]
  - Immune system disorder [Not Recovered/Not Resolved]
  - Pharyngitis streptococcal [Not Recovered/Not Resolved]
  - Irritability [Not Recovered/Not Resolved]
